FAERS Safety Report 7318942-6 (Version None)
Quarter: 2011Q1

REPORT INFORMATION
  Report Type: 
  Country: None (occurrence: None)
  Receive Date: 20110228
  Receipt Date: 20110215
  Transmission Date: 20110831
  Serious: Yes (Hospitalization)
  Sender: FDA-Public Use
  Company Number: US-JNJFOC-20110205639

PATIENT

DRUGS (1)
  1. STELARA [Suspect]
     Indication: PSORIASIS
     Route: 058

REACTIONS (4)
  - URINARY TRACT INFECTION [None]
  - PSORIASIS [None]
  - THROMBOSIS [None]
  - PULMONARY EMBOLISM [None]
